FAERS Safety Report 25771567 (Version 1)
Quarter: 2025Q3

REPORT INFORMATION
  Report Type: Spontaneous
  Country: US (occurrence: US)
  Receive Date: 20250908
  Receipt Date: 20250908
  Transmission Date: 20251020
  Serious: No
  Sender: DOMPE FARMACEUTICI
  Company Number: US-FARMAPROD-202504-1443

PATIENT
  Sex: Male

DRUGS (10)
  1. OXERVATE [Suspect]
     Active Substance: CENEGERMIN-BKBJ
     Indication: Neurotrophic keratopathy
     Route: 047
     Dates: start: 20250417
  2. OXERVATE [Suspect]
     Active Substance: CENEGERMIN-BKBJ
  3. PRED FORTE [Concomitant]
     Active Substance: PREDNISOLONE ACETATE
  4. MOXIFLOXACIN [Concomitant]
     Active Substance: MOXIFLOXACIN
  5. NM-6603 [Concomitant]
     Active Substance: NM-6603
  6. VITAMIN D3 [Concomitant]
     Active Substance: CHOLECALCIFEROL
  7. TAMSULOSIN HYDROCHLORIDE [Concomitant]
     Active Substance: TAMSULOSIN HYDROCHLORIDE
  8. LIPITOR [Concomitant]
     Active Substance: ATORVASTATIN CALCIUM
  9. LOSARTAN POTASSIUM [Concomitant]
     Active Substance: LOSARTAN POTASSIUM
  10. METFORMIN HYDROCHLORIDE [Concomitant]
     Active Substance: METFORMIN HYDROCHLORIDE

REACTIONS (3)
  - Viral infection [Unknown]
  - Eyelid pain [Unknown]
  - Foreign body sensation in eyes [Unknown]
